FAERS Safety Report 9172120 (Version 2)
Quarter: 2013Q2

REPORT INFORMATION
  Report Type: Spontaneous
  Country: US (occurrence: US)
  Receive Date: 20130319
  Receipt Date: 20130410
  Transmission Date: 20140414
  Serious: Yes (Hospitalization, Other)
  Sender: FDA-Public Use
  Company Number: US-ABBOTT-13P-163-1062864-00

PATIENT
  Sex: Male
  Weight: 95.34 kg

DRUGS (4)
  1. ANDROGEL [Suspect]
     Indication: BLOOD TESTOSTERONE DECREASED
     Dates: start: 2009, end: 201012
  2. ANDROGEL [Suspect]
     Dates: start: 201101, end: 201201
  3. METFORMIN [Concomitant]
     Indication: DIABETES MELLITUS
     Dates: start: 2009
  4. LIPITOR [Concomitant]
     Indication: BLOOD CHOLESTEROL INCREASED

REACTIONS (8)
  - Nephrolithiasis [Recovered/Resolved]
  - Infection [Recovered/Resolved]
  - Cardiac arrest [Recovered/Resolved]
  - Drug effect decreased [Not Recovered/Not Resolved]
  - Asthenia [Not Recovered/Not Resolved]
  - Sexual dysfunction [Not Recovered/Not Resolved]
  - Libido decreased [Not Recovered/Not Resolved]
  - Product quality issue [Unknown]
